FAERS Safety Report 25611318 (Version 1)
Quarter: 2025Q3

REPORT INFORMATION
  Report Type: Spontaneous
  Country: US (occurrence: None)
  Receive Date: 20250725
  Receipt Date: 20250725
  Transmission Date: 20251020
  Serious: Yes (Life-Threatening)
  Sender: FDA-CTU
  Company Number: None

PATIENT
  Age: 66 Year
  Sex: Male
  Weight: 112.5 kg

DRUGS (15)
  1. TALVEY [Suspect]
     Active Substance: TALQUETAMAB-TGVS
     Indication: Plasma cell myeloma
     Route: 058
  2. TALVEY [Concomitant]
     Active Substance: TALQUETAMAB-TGVS
  3. FLOMAX [Concomitant]
     Active Substance: TAMSULOSIN HYDROCHLORIDE
  4. BACTRIM [Concomitant]
     Active Substance: SULFAMETHOXAZOLE\TRIMETHOPRIM
  5. ACYCLOVIR [Concomitant]
     Active Substance: ACYCLOVIR
  6. for sleep- lunesta [Concomitant]
  7. HYDROXYZINE [Concomitant]
     Active Substance: HYDROXYZINE HYDROCHLORIDE
  8. lorazapam - 7 pills monthly [Concomitant]
  9. Montlukast [Concomitant]
  10. 1200 mg Guaifenesen 2x daily [Concomitant]
  11. ALLEGRA [Concomitant]
     Active Substance: FEXOFENADINE HYDROCHLORIDE
  12. CLARITIN [Concomitant]
     Active Substance: LORATADINE
  13. ZYRTEC [Concomitant]
     Active Substance: CETIRIZINE HYDROCHLORIDE
  14. Benadry [Concomitant]
  15. Melatonin Various supplements and vitamins [Concomitant]

REACTIONS (2)
  - Dyspnoea [None]
  - Anhidrosis [None]

NARRATIVE: CASE EVENT DATE: 20250524
